FAERS Safety Report 11767444 (Version 1)
Quarter: 2015Q4

REPORT INFORMATION
  Report Type: Spontaneous
  Country: US (occurrence: None)
  Receive Date: 20151120
  Receipt Date: 20151120
  Transmission Date: 20160304
  Serious: Yes (Disabling)
  Sender: FDA-Public Use
  Company Number: None

PATIENT
  Age: 45 Year
  Sex: Female
  Weight: 74.84 kg

DRUGS (15)
  1. ALLOPURINOL. [Concomitant]
     Active Substance: ALLOPURINOL
  2. EVENING PRIMROSE OIL [Concomitant]
     Active Substance: EVENING PRIMROSE OIL
  3. CALCIUM [Concomitant]
     Active Substance: CALCIUM
  4. VITAMIN B12 [Concomitant]
     Active Substance: CYANOCOBALAMIN
  5. MULTI-VITAMIN [Concomitant]
     Active Substance: .ALPHA.-TOCOPHEROL ACETATE, DL-\ASCORBIC ACID\CYANOCOBALAMIN\FLUORIDE ION\FOLIC ACID\NIACIN\PYRIDOXINE\RIBOFLAVIN\THIAMINE\VITAMIN A\VITAMIN D
  6. LUNESTA [Concomitant]
     Active Substance: ESZOPICLONE
  7. FISH OIL [Concomitant]
     Active Substance: FISH OIL
  8. MIRENA [Suspect]
     Active Substance: LEVONORGESTREL
     Dates: start: 20150918, end: 20151118
  9. 6MP [Concomitant]
     Active Substance: MERCAPTOPURINE
  10. DEPO-PROVERA [Concomitant]
     Active Substance: MEDROXYPROGESTERONE ACETATE
  11. CLARITIN [Concomitant]
     Active Substance: LORATADINE
  12. SUDAFED [Concomitant]
     Active Substance: PSEUDOEPHEDRINE HYDROCHLORIDE
  13. HORSE CHESTNUT [Concomitant]
     Active Substance: HORSE CHESTNUT
  14. LINZESS [Concomitant]
     Active Substance: LINACLOTIDE
  15. PRILOSEC [Concomitant]
     Active Substance: OMEPRAZOLE MAGNESIUM

REACTIONS (2)
  - Medical device complication [None]
  - Back pain [None]

NARRATIVE: CASE EVENT DATE: 20151118
